FAERS Safety Report 25667174 (Version 1)
Quarter: 2025Q3

REPORT INFORMATION
  Report Type: Spontaneous
  Country: US (occurrence: None)
  Receive Date: 20250810
  Receipt Date: 20250810
  Transmission Date: 20251020
  Serious: Yes (Hospitalization)
  Sender: FDA-CTU
  Company Number: None

PATIENT
  Sex: Male

DRUGS (1)
  1. MACITENTAN\TADALAFIL [Suspect]
     Active Substance: MACITENTAN\TADALAFIL
     Dosage: FREQUENCY : DAILY;?
     Route: 048

REACTIONS (3)
  - Tachycardia [None]
  - Pulmonary oedema [None]
  - Arterial occlusive disease [None]
